FAERS Safety Report 21861142 (Version 2)
Quarter: 2023Q1

REPORT INFORMATION
  Report Type: Spontaneous
  Country: BR (occurrence: BR)
  Receive Date: 20230113
  Receipt Date: 20230316
  Transmission Date: 20230417
  Serious: Yes (Other)
  Sender: FDA-Public Use
  Company Number: BR-SA-SAC20230111000746

PATIENT
  Age: 1 Year
  Sex: Female
  Weight: 11.2 kg

DRUGS (3)
  1. SABRIL [Suspect]
     Active Substance: VIGABATRIN
     Indication: Product used for unknown indication
     Dosage: 1 DF, Q12H
     Route: 065
  2. DEPAKENE [Concomitant]
     Active Substance: VALPROIC ACID
     Indication: Seizure
     Dosage: 2.5 ML, Q8H
     Route: 065
  3. NITRAZEPAM [Concomitant]
     Active Substance: NITRAZEPAM
     Indication: Seizure
     Dosage: 0.5 UNK, Q8H
     Route: 065

REACTIONS (1)
  - Drug dependence [Unknown]
